FAERS Safety Report 19447751 (Version 1)
Quarter: 2021Q2

REPORT INFORMATION
  Report Type: Spontaneous
  Country: US (occurrence: US)
  Receive Date: 20210622
  Receipt Date: 20210622
  Transmission Date: 20210717
  Serious: No
  Sender: FDA-Public Use
  Company Number: US-EMD SERONO-9243234

PATIENT
  Age: 46 Year
  Sex: Female

DRUGS (1)
  1. MAVENCLAD [Suspect]
     Active Substance: CLADRIBINE
     Indication: MULTIPLE SCLEROSIS
     Dosage: YEAR CYCLE THERAPY
     Route: 048
     Dates: start: 202105

REACTIONS (3)
  - Fatigue [Recovering/Resolving]
  - Sunburn [Unknown]
  - Blister [Unknown]

NARRATIVE: CASE EVENT DATE: 20210527
